APPROVED DRUG PRODUCT: SURITAL
Active Ingredient: THIAMYLAL SODIUM
Strength: 1GM/VIAL
Dosage Form/Route: INJECTABLE;INJECTION
Application: N007600 | Product #003
Applicant: PARKEDALE PHARMACEUTICALS INC
Approved: Approved Prior to Jan 1, 1982 | RLD: No | RS: No | Type: DISCN